FAERS Safety Report 19670087 (Version 2)
Quarter: 2022Q1

REPORT INFORMATION
  Report Type: Spontaneous
  Country: FR (occurrence: None)
  Receive Date: 20210806
  Receipt Date: 20220310
  Transmission Date: 20220423
  Serious: Yes (Hospitalization, Other)
  Sender: FDA-Public Use
  Company Number: 2021A646141

PATIENT
  Age: 74 Year
  Sex: Female
  Weight: 95 kg

DRUGS (10)
  1. ESOMEPRAZOLE [Suspect]
     Active Substance: ESOMEPRAZOLE
     Indication: Dyspepsia
     Route: 048
     Dates: start: 202011, end: 20210603
  2. FENOFIBRATE [Suspect]
     Active Substance: FENOFIBRATE
     Indication: Hypercholesterolaemia
     Route: 048
     Dates: end: 20210603
  3. FUROSEMIDE [Suspect]
     Active Substance: FUROSEMIDE
     Indication: Hypertension
     Dosage: 40 MILLIGRAM, 1/DAY
     Route: 048
     Dates: end: 20210603
  4. ENALAPRIL MALEATE [Suspect]
     Active Substance: ENALAPRIL MALEATE
     Indication: Hypertension
     Dosage: 20 MILLIGRAM, 1/DAY
     Route: 048
     Dates: end: 20210603
  5. CHOLECALCIFEROL [Concomitant]
     Active Substance: CHOLECALCIFEROL
     Indication: Product used for unknown indication
     Dosage: 1 DOSAGE FORM, 2/MONTH
     Route: 048
  6. LATANOPROST [Concomitant]
     Active Substance: LATANOPROST
     Indication: Product used for unknown indication
     Route: 047
  7. CORDARONE [Concomitant]
     Active Substance: AMIODARONE HYDROCHLORIDE
     Indication: Product used for unknown indication
     Route: 048
     Dates: start: 202011
  8. DOLIPRANE [Concomitant]
     Active Substance: ACETAMINOPHEN
     Indication: Product used for unknown indication
     Dosage: 1.0G UNKNOWN
     Route: 048
  9. SYMBICORT [Concomitant]
     Active Substance: BUDESONIDE\FORMOTEROL FUMARATE DIHYDRATE
     Indication: Product used for unknown indication
     Route: 055
  10. POTASSIUM CHLORIDE [Concomitant]
     Active Substance: POTASSIUM CHLORIDE
     Indication: Product used for unknown indication
     Route: 048
     Dates: end: 20210603

REACTIONS (1)
  - Renal tubular necrosis [Recovered/Resolved]

NARRATIVE: CASE EVENT DATE: 20210601
